FAERS Safety Report 10311826 (Version 1)
Quarter: 2014Q3

REPORT INFORMATION
  Report Type: Spontaneous
  Country: AU (occurrence: AU)
  Receive Date: 20140717
  Receipt Date: 20140717
  Transmission Date: 20150326
  Serious: Yes (Hospitalization)
  Sender: FDA-Public Use
  Company Number: AU-PFIZER INC-2014197511

PATIENT
  Age: 66 Year
  Sex: Male
  Weight: 80 kg

DRUGS (5)
  1. DABIGATRAN [Suspect]
     Active Substance: DABIGATRAN
     Dosage: 9 G, UNK
  2. AMLODIPINE BESILATE [Suspect]
     Active Substance: AMLODIPINE BESYLATE
     Dosage: 150 MG, UNK
     Route: 039
  3. OLMETEC [Suspect]
     Active Substance: OLMESARTAN MEDOXOMIL
     Dosage: 600 MG, UNK
  4. METOPROLOL TARTRATE. [Suspect]
     Active Substance: METOPROLOL TARTRATE
     Dosage: 5 G, UNK
  5. MOXONIDINE [Suspect]
     Active Substance: MOXONIDINE
     Dosage: 12 MG, UNK

REACTIONS (6)
  - Coagulopathy [Recovered/Resolved]
  - Bradycardia [Recovered/Resolved]
  - Hypotension [Recovered/Resolved]
  - Intentional overdose [Recovered/Resolved]
  - Renal impairment [Recovered/Resolved]
  - Suicide attempt [Recovered/Resolved]
